FAERS Safety Report 10235682 (Version 2)
Quarter: 2014Q2

REPORT INFORMATION
  Report Type: Spontaneous
  Country: FR (occurrence: FR)
  Receive Date: 20140613
  Receipt Date: 20140613
  Transmission Date: 20141212
  Serious: Yes (Death, Hospitalization)
  Sender: FDA-Public Use
  Company Number: FR-SANOFI-AVENTIS-A02200802123

PATIENT
  Age: 52 Year
  Sex: Female

DRUGS (5)
  1. FLUOROURACIL [Suspect]
     Indication: METASTATIC GASTRIC CANCER
     Route: 042
     Dates: start: 20080415, end: 20080415
  2. ELOXATINE [Suspect]
     Dosage: UNIT DOSE: 5 MG/ML
     Route: 042
     Dates: start: 20080327, end: 20080327
  3. CALCIUM FOLINATE [Suspect]
     Dosage: UNIT DOSE: 50 MG
     Route: 042
     Dates: start: 20080415, end: 20080415
  4. CAMPTO [Suspect]
     Route: 042
     Dates: start: 20080415, end: 20080415
  5. PERFALGAN [Concomitant]
     Route: 042

REACTIONS (6)
  - Haemolytic uraemic syndrome [Fatal]
  - Haemoglobin decreased [Fatal]
  - Thrombocytopenia [Fatal]
  - Reticulocyte count decreased [Fatal]
  - Blood lactate dehydrogenase increased [Fatal]
  - Renal failure [Fatal]
